FAERS Safety Report 5391295-9 (Version None)
Quarter: 2007Q3

REPORT INFORMATION
  Report Type: 
  Country: None (occurrence: None)
  Receive Date: 20070719
  Receipt Date: 20070717
  Transmission Date: 20080115
  Serious: Yes (Death, Life-Threatening)
  Sender: FDA-Public Use
  Company Number: A0632054A

PATIENT
  Age: 17 Year
  Sex: Female
  Weight: 59.5 kg

DRUGS (5)
  1. PAROXETINE [Suspect]
     Indication: ANXIETY
     Dosage: 20MG PER DAY
     Route: 048
     Dates: start: 20040108
  2. PAXIL [Suspect]
     Indication: ANXIETY
     Route: 048
     Dates: start: 20040101
  3. FENTANYL TRANSDERMAL SYSTEM [Suspect]
     Route: 062
  4. SULFAMETHOXAZOLE [Concomitant]
  5. BIRTH CONTROL PILLS [Concomitant]

REACTIONS (14)
  - AGGRESSION [None]
  - AGITATION [None]
  - ANXIETY [None]
  - BRAIN OEDEMA [None]
  - COMPLETED SUICIDE [None]
  - DEPRESSION [None]
  - DRUG TOXICITY [None]
  - HOSTILITY [None]
  - IMPULSIVE BEHAVIOUR [None]
  - IRRITABILITY [None]
  - OVERDOSE [None]
  - PULMONARY CONGESTION [None]
  - PULMONARY OEDEMA [None]
  - SUICIDAL IDEATION [None]
